FAERS Safety Report 5562852-1 (Version None)
Quarter: 2007Q4

REPORT INFORMATION
  Report Type: 
  Country: None (occurrence: None)
  Receive Date: 20071217
  Receipt Date: 20071211
  Transmission Date: 20080405
  Serious: Yes (Other)
  Sender: FDA-Public Use
  Company Number: US-JNJFOC-20071203084

PATIENT
  Age: 50 Year
  Sex: Female
  Weight: 64.41 kg

DRUGS (2)
  1. EXTRA STRENGTH TYLENOL [Suspect]
     Indication: INSOMNIA
  2. VITAMINS [Concomitant]
     Indication: GENERAL PHYSICAL CONDITION

REACTIONS (3)
  - BRONCHITIS [None]
  - DYSPHAGIA [None]
  - PHARYNGITIS [None]
